FAERS Safety Report 5825196-6 (Version None)
Quarter: 2008Q3

REPORT INFORMATION
  Report Type: 
  Country: None (occurrence: None)
  Receive Date: 20080729
  Receipt Date: 20080721
  Transmission Date: 20090109
  Serious: Yes (Other)
  Sender: FDA-Public Use
  Company Number: PHHY2008DE11751

PATIENT

DRUGS (5)
  1. EXELON [Suspect]
     Indication: DEMENTIA
     Dosage: 4.6 MG/24 HR
     Route: 062
     Dates: start: 20071212, end: 20080115
  2. EXELON [Suspect]
     Dosage: 9.5 MG/24 HR
     Route: 062
     Dates: start: 20080116, end: 20080228
  3. LEVODOPA [Suspect]
     Indication: PARKINSON'S DISEASE
     Dosage: 300 MG,DAY
     Route: 048
     Dates: start: 20070101, end: 20080205
  4. LEVODOPA [Suspect]
     Dosage: 150 MG/DAY
     Route: 048
     Dates: start: 20080206, end: 20080331
  5. LEVODOPA [Suspect]
     Dosage: 150 MG,DAY
     Route: 048
     Dates: start: 20080401

REACTIONS (2)
  - HALLUCINATION [None]
  - PSYCHOTIC DISORDER [None]
